FAERS Safety Report 4995028-7 (Version None)
Quarter: 2006Q2

REPORT INFORMATION
  Report Type: 
  Country: None (occurrence: None)
  Receive Date: 20060503
  Receipt Date: 20060418
  Transmission Date: 20061013
  Serious: Yes (Hospitalization, Disabling)
  Sender: FDA-Public Use
  Company Number: 385660

PATIENT
  Age: 21 Year
  Sex: Female
  Weight: 74.8 kg

DRUGS (1)
  1. ACCUTANE [Suspect]
     Indication: ACNE
     Dosage: 60 MG DAILY
     Dates: start: 19930612, end: 19990215

REACTIONS (42)
  - ABSCESS INTESTINAL [None]
  - ACID FAST BACILLI INFECTION [None]
  - ANAEMIA [None]
  - ANGIONEUROTIC OEDEMA [None]
  - ANXIETY [None]
  - ARTHRALGIA [None]
  - ARTHRITIS ENTEROPATHIC [None]
  - BLOOD IRON DECREASED [None]
  - COLITIS ULCERATIVE [None]
  - COUGH [None]
  - CROHN'S DISEASE [None]
  - DECREASED APPETITE [None]
  - DEHYDRATION [None]
  - DIFFICULTY IN WALKING [None]
  - EATING DISORDER [None]
  - ENTEROCOLITIS INFECTIOUS [None]
  - ERYTHEMA NODOSUM [None]
  - EYE PRURITUS [None]
  - EYE SWELLING [None]
  - FLATULENCE [None]
  - GASTRITIS [None]
  - GASTROINTESTINAL DISORDER [None]
  - GRANULOMA [None]
  - ILEITIS [None]
  - INFLAMMATORY BOWEL DISEASE [None]
  - INTESTINAL HAEMORRHAGE [None]
  - INTESTINAL MUCOSAL HYPERTROPHY [None]
  - LYMPHOCYTIC INFILTRATION [None]
  - MULTI-ORGAN DISORDER [None]
  - NIGHT SWEATS [None]
  - OESOPHAGITIS [None]
  - ORAL PAIN [None]
  - PLATELET COUNT INCREASED [None]
  - RECTAL FISSURE [None]
  - RECTAL HAEMORRHAGE [None]
  - RHEUMATOID ARTHRITIS [None]
  - SINUS DISORDER [None]
  - SPONDYLOARTHROPATHY [None]
  - SWELLING FACE [None]
  - URINARY TRACT INFECTION [None]
  - VIRAL INFECTION [None]
  - WEIGHT DECREASED [None]
